FAERS Safety Report 24864164 (Version 1)
Quarter: 2025Q1

REPORT INFORMATION
  Report Type: Spontaneous
  Country: CH (occurrence: CH)
  Receive Date: 20250120
  Receipt Date: 20250120
  Transmission Date: 20250409
  Serious: Yes (Hospitalization, Other)
  Sender: SANDOZ
  Company Number: CH-SANDOZ-SDZ2025CH001888

PATIENT
  Age: 78 Year
  Sex: Male
  Weight: 82 kg

DRUGS (3)
  1. CAPECITABINE [Suspect]
     Active Substance: CAPECITABINE
     Indication: Adenocarcinoma of colon
     Dosage: 1000 MG/M2, Q3W; ^2 DAYS 1-14/CYCLE
     Route: 048
     Dates: start: 20240903, end: 20240917
  2. OXALIPLATIN [Suspect]
     Active Substance: OXALIPLATIN
     Indication: Adenocarcinoma of colon
     Dosage: 130 MG/M2, Q3W (REDUCED DOSE 80%)
     Route: 040
     Dates: start: 20240903, end: 20240917
  3. Co valsartan [Concomitant]
     Indication: Hypertension
     Route: 048
     Dates: end: 20240917

REACTIONS (4)
  - Pancytopenia [Recovering/Resolving]
  - Colitis [Recovering/Resolving]
  - Mucosal inflammation [Recovering/Resolving]
  - Disseminated intravascular coagulation [Recovering/Resolving]

NARRATIVE: CASE EVENT DATE: 20240901
